FAERS Safety Report 13697037 (Version 2)
Quarter: 2017Q3

REPORT INFORMATION
  Report Type: Spontaneous
  Country: JP (occurrence: JP)
  Receive Date: 20170628
  Receipt Date: 20170707
  Transmission Date: 20171127
  Serious: Yes (Other)
  Sender: FDA-Public Use
  Company Number: JP-BAYER-2017-119906

PATIENT
  Sex: Female

DRUGS (1)
  1. INTERFERON BETA - 1B [Suspect]
     Active Substance: INTERFERON BETA-1B
     Dosage: RECEIVED BETAFERON FOR ABOUT ONE AND A HALF YEARS
     Route: 058

REACTIONS (1)
  - Pulmonary tuberculosis [None]
